APPROVED DRUG PRODUCT: INJECTAFER
Active Ingredient: FERRIC CARBOXYMALTOSE
Strength: 100MG IRON/2ML (50MG IRON/ML)
Dosage Form/Route: SOLUTION;INTRAVENOUS
Application: N203565 | Product #004
Applicant: AMERICAN REGENT INC
Approved: Feb 4, 2022 | RLD: Yes | RS: Yes | Type: RX

PATENTS:
Patent 11478502 | Expires: Jan 8, 2027
Patent 11478502 | Expires: Jan 8, 2027
Patent 11478502 | Expires: Jan 8, 2027
Patent 11433091 | Expires: Jan 8, 2027
Patent 11433091 | Expires: Jan 8, 2027
Patent 11433091 | Expires: Jan 8, 2027
Patent 11433091 | Expires: Jan 8, 2027
Patent 11364260 | Expires: Jan 8, 2027
Patent 11433091 | Expires: Jan 8, 2027
Patent 8895612 | Expires: Jan 8, 2027
Patent 7754702 | Expires: Feb 15, 2028
Patent 7754702 | Expires: Feb 15, 2028
Patent 7754702 | Expires: Feb 15, 2028
Patent 7754702 | Expires: Feb 15, 2028
Patent 8895612 | Expires: Jan 8, 2027
Patent 8895612 | Expires: Jan 8, 2027
Patent 8895612 | Expires: Jan 8, 2027
Patent 8895612 | Expires: Jan 8, 2027
Patent 7612109 | Expires: Feb 5, 2027

EXCLUSIVITY:
Code: I-915 | Date: May 31, 2026